FAERS Safety Report 6382751-5 (Version None)
Quarter: 2009Q3

REPORT INFORMATION
  Report Type: 
  Country: None (occurrence: None)
  Receive Date: 20090928
  Receipt Date: 20090928
  Transmission Date: 20100115
  Serious: Yes (Death)
  Sender: FDA-Public Use
  Company Number: None

PATIENT
  Age: 52 Year
  Sex: Female

DRUGS (1)
  1. ARIXTRA [Suspect]
     Indication: DEEP VEIN THROMBOSIS
     Dosage: 7.5MG DAILY SQ
     Route: 058
     Dates: start: 20080326, end: 20080425

REACTIONS (2)
  - CARDIO-RESPIRATORY ARREST [None]
  - COLON CANCER METASTATIC [None]
